FAERS Safety Report 6304422-3 (Version None)
Quarter: 2009Q3

REPORT INFORMATION
  Report Type: 
  Country: None (occurrence: None)
  Receive Date: 20090811
  Receipt Date: 20090731
  Transmission Date: 20100115
  Serious: Yes (Other)
  Sender: FDA-Public Use
  Company Number: CA-BRISTOL-MYERS SQUIBB COMPANY-14734941

PATIENT
  Age: 37 Year
  Sex: Male

DRUGS (3)
  1. BLEOMYCIN SULFATE [Suspect]
  2. CISPLATIN [Suspect]
  3. ETOPOSIDE [Suspect]

REACTIONS (1)
  - ARTERIAL THROMBOSIS [None]
